FAERS Safety Report 5474418-2 (Version None)
Quarter: 2007Q3

REPORT INFORMATION
  Report Type: 
  Country: None (occurrence: None)
  Receive Date: 20070928
  Receipt Date: 20070928
  Transmission Date: 20080115
  Serious: Yes (Life-Threatening)
  Sender: FDA-Public Use
  Company Number: None

PATIENT
  Age: 37 Year
  Sex: Male
  Weight: 65.7716 kg

DRUGS (1)
  1. NOVOLOG MIX 70/30 [Suspect]
     Indication: TYPE 1 DIABETES MELLITUS
     Dosage: VARIES BETWEEN INDIVIDUALS   SQ
     Route: 058
     Dates: start: 20070906, end: 20070927

REACTIONS (6)
  - CARDIAC FLUTTER [None]
  - DRUG DISPENSING ERROR [None]
  - HYPOAESTHESIA [None]
  - PALPITATIONS [None]
  - THIRST [None]
  - WRONG DRUG ADMINISTERED [None]
